FAERS Safety Report 19771495 (Version 1)
Quarter: 2021Q3

REPORT INFORMATION
  Report Type: Spontaneous
  Country: US (occurrence: US)
  Receive Date: 20210901
  Receipt Date: 20210901
  Transmission Date: 20211014
  Serious: Yes (Life-Threatening, Hospitalization, Other)
  Sender: FDA-Public Use
  Company Number: None

PATIENT
  Age: 44 Year
  Sex: Male
  Weight: 152.3 kg

DRUGS (12)
  1. REMDESIVIR. [Concomitant]
     Active Substance: REMDESIVIR
     Dates: start: 20210826, end: 20210829
  2. SARILUMAB [Concomitant]
     Active Substance: SARILUMAB
     Dates: start: 20210831, end: 20210831
  3. ZINC SULFATE. [Concomitant]
     Active Substance: ZINC SULFATE
     Dates: start: 20210826
  4. LISINOPRIL. [Concomitant]
     Active Substance: LISINOPRIL
  5. DEXAMETHASONE. [Concomitant]
     Active Substance: DEXAMETHASONE
     Dates: start: 20210826
  6. METOPROLOL. [Concomitant]
     Active Substance: METOPROLOL
  7. NICOTINE TRANSDERMAL SYSTEM [Concomitant]
     Active Substance: NICOTINE
     Dates: start: 20210827
  8. AZITHROMYCIN ANHYDROUS. [Concomitant]
     Active Substance: AZITHROMYCIN ANHYDROUS
     Dates: start: 20210825
  9. ASCORBIC ACID. [Concomitant]
     Active Substance: ASCORBIC ACID
     Dates: start: 20210826
  10. CHOLECALCIFEROL [Concomitant]
     Active Substance: CHOLECALCIFEROL
     Dates: start: 20210826
  11. BARICITINIB. [Suspect]
     Active Substance: BARICITINIB
     Indication: COVID-19
     Route: 048
     Dates: start: 20210829, end: 20210830
  12. INSULIN LISPRO [Concomitant]
     Active Substance: INSULIN LISPRO
     Dates: start: 20210825

REACTIONS (2)
  - Dyspnoea [None]
  - Pulmonary embolism [None]

NARRATIVE: CASE EVENT DATE: 20210830
